FAERS Safety Report 8577211-7 (Version None)
Quarter: 2012Q3

REPORT INFORMATION
  Report Type: 
  Country: None (occurrence: None)
  Receive Date: 20120807
  Receipt Date: 20120731
  Transmission Date: 20120928
  Serious: Yes (Other)
  Sender: FDA-Public Use
  Company Number: US-BRISTOL-MYERS SQUIBB COMPANY-16823742

PATIENT
  Sex: Female

DRUGS (4)
  1. XANAX [Concomitant]
     Indication: DYSLEXIA
  2. XANAX [Concomitant]
     Indication: PANIC ATTACK
  3. ABILIFY [Suspect]
     Indication: BIPOLAR DISORDER
     Dosage: OFF OF IT SINCE JAN2012  RESTARTED ABILIFY 5MG AT BEDTIME ON 13JUL2012.
     Dates: start: 20120101
  4. ABILIFY [Suspect]
     Indication: MANIA
     Dosage: OFF OF IT SINCE JAN2012  RESTARTED ABILIFY 5MG AT BEDTIME ON 13JUL2012.
     Dates: start: 20120101

REACTIONS (4)
  - MEMORY IMPAIRMENT [None]
  - MANIA [None]
  - PARANOIA [None]
  - DRUG DOSE OMISSION [None]
